FAERS Safety Report 6767495-X (Version None)
Quarter: 2010Q2

REPORT INFORMATION
  Report Type: 
  Country: None (occurrence: None)
  Receive Date: 20100614
  Receipt Date: 20100602
  Transmission Date: 20101027
  Serious: Yes (Hospitalization)
  Sender: FDA-Public Use
  Company Number: PHHY2010DE15266

PATIENT
  Sex: Male
  Weight: 82 kg

DRUGS (7)
  1. DIOVAN HCT [Suspect]
     Indication: HYPERTENSION
     Dosage: 1 DF, PER DAY
     Route: 048
     Dates: start: 20070701, end: 20090208
  2. DIOVAN HCT [Suspect]
     Indication: HYPERTENSION
     Dosage: 1 DF, PER DAY
     Route: 048
     Dates: start: 20090209
  3. NO TREATMENT RECEIVED NOMED [Suspect]
  4. ASPIRIN [Concomitant]
     Indication: CORONARY ARTERY DISEASE
     Dosage: 100 MG, PER DAY
     Route: 048
     Dates: start: 20070101
  5. SIMVAHEXAL [Concomitant]
     Indication: HYPERCHOLESTEROLAEMIA
     Dosage: 30 MG, PER DAY
     Route: 048
     Dates: start: 20070701
  6. METOPROLOL RETARD [Concomitant]
     Indication: HYPERTENSION
     Dosage: 50 MG, PER DAY
     Route: 048
     Dates: start: 20070701
  7. ACE INHIBITOR NOS [Concomitant]
     Dosage: UNK
     Dates: start: 20091107

REACTIONS (2)
  - ANGINA PECTORIS [None]
  - DYSPNOEA [None]
